FAERS Safety Report 11524562 (Version 1)
Quarter: 2015Q3

REPORT INFORMATION
  Report Type: Spontaneous
  Country: US (occurrence: US)
  Receive Date: 20150903
  Receipt Date: 20150903
  Transmission Date: 20151125
  Serious: No
  Sender: FDA-Public Use
  Company Number: US-ELI_LILLY_AND_COMPANY-US201305009405

PATIENT
  Age: 62 Year
  Sex: Female
  Weight: 68.48 kg

DRUGS (3)
  1. CYMBALTA [Suspect]
     Active Substance: DULOXETINE HYDROCHLORIDE
     Indication: DEPRESSION
     Dosage: 30 MG, EACH MORNING
     Route: 048
     Dates: start: 20120327, end: 20120406
  2. CYMBALTA [Suspect]
     Active Substance: DULOXETINE HYDROCHLORIDE
     Indication: PAIN
  3. GABAPENTIN. [Concomitant]
     Active Substance: GABAPENTIN
     Dosage: 100 MG, TID
     Route: 065

REACTIONS (8)
  - Major depression [Recovered/Resolved]
  - Decreased appetite [Unknown]
  - Weight decreased [Unknown]
  - Energy increased [Unknown]
  - Tremor [Unknown]
  - Pain [Unknown]
  - Feeling jittery [Unknown]
  - Anxiety [Unknown]

NARRATIVE: CASE EVENT DATE: 20130327
